FAERS Safety Report 24831255 (Version 1)
Quarter: 2025Q1

REPORT INFORMATION
  Report Type: Spontaneous
  Country: FR (occurrence: FR)
  Receive Date: 20250110
  Receipt Date: 20250110
  Transmission Date: 20250409
  Serious: Yes (Life-Threatening)
  Sender: RANBAXY
  Company Number: FR-AFSSAPS-NT2024001369

PATIENT
  Age: 30 Year
  Sex: Female

DRUGS (3)
  1. PAROXETINE [Suspect]
     Active Substance: PAROXETINE
     Indication: Toxicity to various agents
     Route: 048
     Dates: start: 20240823, end: 20240823
  2. CYAMEMAZINE [Suspect]
     Active Substance: CYAMEMAZINE
     Indication: Toxicity to various agents
     Route: 048
     Dates: start: 20240823, end: 20240823
  3. XANAX [Suspect]
     Active Substance: ALPRAZOLAM
     Indication: Toxicity to various agents
     Route: 048
     Dates: start: 20240823, end: 20240823

REACTIONS (3)
  - Coma [Recovered/Resolved]
  - Rhabdomyolysis [Recovered/Resolved]
  - Toxicity to various agents [Recovered/Resolved]

NARRATIVE: CASE EVENT DATE: 20240823
